FAERS Safety Report 25617787 (Version 1)
Quarter: 2025Q3

REPORT INFORMATION
  Report Type: Spontaneous
  Country: CN (occurrence: CN)
  Receive Date: 20250729
  Receipt Date: 20250729
  Transmission Date: 20251021
  Serious: Yes (Other)
  Sender: ORGANON
  Company Number: CN-ORGANON-O2507CHN002531

PATIENT
  Age: 61 Year
  Sex: Female
  Weight: 58 kg

DRUGS (2)
  1. FOSAMAX [Suspect]
     Active Substance: ALENDRONATE SODIUM
     Indication: Osteoporosis postmenopausal
     Dosage: 70 MILLIGRAM, QW
     Route: 048
     Dates: start: 20250301, end: 20250401
  2. CALCITRIOL [Suspect]
     Active Substance: CALCITRIOL
     Indication: Osteoporosis postmenopausal
     Dosage: 0.25 MICROGRAM, BID
     Route: 048
     Dates: start: 20250301, end: 20250401

REACTIONS (1)
  - Renal impairment [Recovered/Resolved]

NARRATIVE: CASE EVENT DATE: 20250401
